FAERS Safety Report 17299306 (Version 1)
Quarter: 2020Q1

REPORT INFORMATION
  Report Type: Spontaneous
  Country: TW (occurrence: TW)
  Receive Date: 20200122
  Receipt Date: 20200122
  Transmission Date: 20200409
  Serious: Yes (Other)
  Sender: FDA-Public Use
  Company Number: TW-REGENERON PHARMACEUTICALS, INC.-2020-14005

PATIENT

DRUGS (3)
  1. EYLEA [Suspect]
     Active Substance: AFLIBERCEPT
     Indication: NEOVASCULAR AGE-RELATED MACULAR DEGENERATION
     Dosage: LEFT EYE, 3 INJECTIONS RECEIVED
     Route: 031
     Dates: start: 201810, end: 201812
  2. EYLEA [Suspect]
     Active Substance: AFLIBERCEPT
     Dosage: 4TH INJECTION
     Route: 031
  3. EYLEA [Suspect]
     Active Substance: AFLIBERCEPT
     Dosage: 5TH INJECTION, LEFT EYE
     Route: 031
     Dates: start: 201903, end: 201903

REACTIONS (2)
  - Blindness unilateral [Unknown]
  - Endophthalmitis [Recovered/Resolved]
